FAERS Safety Report 8306162-8 (Version None)
Quarter: 2012Q2

REPORT INFORMATION
  Report Type: 
  Country: None (occurrence: None)
  Receive Date: 20120423
  Receipt Date: 20120411
  Transmission Date: 20120825
  Serious: Yes (Death, Life-Threatening, Hospitalization, Other)
  Sender: FDA-Public Use
  Company Number: JP-BRISTOL-MYERS SQUIBB COMPANY-14706568

PATIENT
  Age: 25 Year
  Sex: Male
  Weight: 57 kg

DRUGS (17)
  1. ITRACONAZOLE [Suspect]
     Indication: PROPHYLAXIS
     Dosage: CAPSULE;400-200MG/DAY(06JUL-16JUL09)INJ.
     Route: 048
     Dates: start: 20090606, end: 20090716
  2. FOSCAVIR [Suspect]
     Dosage: FORM:INJ1 DF= 10 UNIT NOS
     Route: 041
     Dates: start: 20090710, end: 20090716
  3. BACTRIM [Suspect]
     Indication: ANTIBIOTIC PROPHYLAXIS
     Dosage: 1DF=1TAB;800MG/DAY(02JUL-18JUL09)INJ.
     Route: 048
     Dates: start: 20090414, end: 20090716
  4. CEFTAZIDIME [Concomitant]
     Dosage: FORM:INJ
     Route: 042
     Dates: start: 20090630, end: 20090710
  5. SOLU-MEDROL [Concomitant]
     Indication: ACUTE LYMPHOCYTIC LEUKAEMIA
     Dosage: FORM:INJ
     Route: 042
     Dates: start: 20090711, end: 20090728
  6. AMBISOME [Concomitant]
     Dosage: FORM:INJ
     Route: 042
     Dates: start: 20090718, end: 20090728
  7. PIPERACILLIN AND TAZOBACTAM [Concomitant]
     Route: 042
     Dates: start: 20090720, end: 20090724
  8. PENTAMIDINE ISETHIONATE [Concomitant]
     Dosage: FORM:INJ
     Route: 042
     Dates: start: 20090718, end: 20090728
  9. FAROM [Suspect]
     Route: 048
     Dates: start: 20090428, end: 20090501
  10. NEORAL [Suspect]
     Indication: PROPHYLAXIS
     Dosage: 09JUL-16JUL09. 125MG/DAY SANDIMMUN:INJ:50MG/DY:09JUL-16JUL09
     Route: 048
     Dates: start: 20090414, end: 20090708
  11. GANCICLOVIR [Concomitant]
     Dosage: FORM:INJ;50MG(18JUL09-28JUL09).
     Route: 042
     Dates: start: 20090630, end: 20090709
  12. SPRYCEL [Suspect]
     Indication: ACUTE LYMPHOCYTIC LEUKAEMIA
     Route: 048
     Dates: start: 20090416, end: 20090708
  13. MAXIPIME [Suspect]
     Route: 042
     Dates: start: 20090424, end: 20090427
  14. MEROPENEM [Concomitant]
     Dosage: FORM:INJ
     Route: 042
     Dates: start: 20090725, end: 20090728
  15. OMEGACIN [Concomitant]
     Dosage: FORM:INJ
     Route: 042
     Dates: start: 20090710, end: 20090716
  16. SANDIMMUNE [Concomitant]
     Indication: GRAFT VERSUS HOST DISEASE
     Dates: start: 20090709, end: 20090716
  17. PREDNISOLONE [Concomitant]
     Indication: ACUTE LYMPHOCYTIC LEUKAEMIA
     Dosage: FORM:TABS 55MG 5-18JUN09, 50MG 19-25JUN, 45MG 26-28JUN, 40MG 29JUN-3JUL, 35MG 4-8JUL, 30MG 9-0JUL09
     Route: 048
     Dates: start: 20090605, end: 20090710

REACTIONS (24)
  - RENAL IMPAIRMENT [None]
  - INTERSTITIAL LUNG DISEASE [None]
  - PNEUMONIA CYTOMEGALOVIRAL [None]
  - ORAL HERPES [None]
  - EYELID OEDEMA [None]
  - PULMONARY HAEMORRHAGE [None]
  - GRAFT VERSUS HOST DISEASE [None]
  - HEPATIC FUNCTION ABNORMAL [None]
  - PNEUMONIA VIRAL [None]
  - NEUTROPHIL COUNT DECREASED [None]
  - PNEUMOCYSTIS JIROVECI PNEUMONIA [None]
  - LIVER FUNCTION TEST ABNORMAL [None]
  - HEADACHE [None]
  - DISSEMINATED INTRAVASCULAR COAGULATION [None]
  - GENERALISED OEDEMA [None]
  - GASTROINTESTINAL HAEMORRHAGE [None]
  - PYREXIA [None]
  - ENTEROCOLITIS [None]
  - PERICARDIAL EFFUSION [None]
  - PLATELET COUNT DECREASED [None]
  - PLEURAL EFFUSION [None]
  - WHITE BLOOD CELL COUNT DECREASED [None]
  - ANAEMIA [None]
  - BRONCHOPULMONARY ASPERGILLOSIS [None]
